FAERS Safety Report 6073943-3 (Version None)
Quarter: 2009Q1

REPORT INFORMATION
  Report Type: 
  Country: None (occurrence: None)
  Receive Date: 20090209
  Receipt Date: 20090209
  Transmission Date: 20090719
  Serious: Yes (Other)
  Sender: FDA-Public Use
  Company Number: None

PATIENT
  Age: 33 Year
  Sex: Female
  Weight: 53.5244 kg

DRUGS (1)
  1. VAGISTAT-1 [Suspect]
     Indication: FUNGAL INFECTION
     Dosage: 1 1 VAG
     Route: 067

REACTIONS (7)
  - BURNING SENSATION [None]
  - DISCOMFORT [None]
  - ERYTHEMA [None]
  - PRURITUS [None]
  - SWELLING [None]
  - VAGINAL HAEMORRHAGE [None]
  - VULVOVAGINAL DISCOMFORT [None]
